FAERS Safety Report 8393685-9 (Version None)
Quarter: 2012Q2

REPORT INFORMATION
  Report Type: 
  Country: None (occurrence: None)
  Receive Date: 20120530
  Receipt Date: 20120521
  Transmission Date: 20120825
  Serious: No
  Sender: FDA-Public Use
  Company Number: US-BIOGENIDEC-2012BI017908

PATIENT
  Age: 27 Year
  Sex: Female

DRUGS (2)
  1. AVONEX [Concomitant]
     Indication: MULTIPLE SCLEROSIS
     Route: 030
     Dates: start: 20100316
  2. TYSABRI [Suspect]
     Indication: MULTIPLE SCLEROSIS
     Route: 042
     Dates: start: 20110627

REACTIONS (6)
  - GENERAL SYMPTOM [None]
  - FEELING JITTERY [None]
  - ASTHENIA [None]
  - FALL [None]
  - POOR VENOUS ACCESS [None]
  - FOOT FRACTURE [None]
